FAERS Safety Report 21704138 (Version 1)
Quarter: 2022Q4

REPORT INFORMATION
  Report Type: Spontaneous
  Country: US (occurrence: US)
  Receive Date: 20221209
  Receipt Date: 20221209
  Transmission Date: 20230113
  Serious: Yes (Death, Hospitalization)
  Sender: FDA-Public Use
  Company Number: US-drreddys-LIT/USA/22/0157943

PATIENT
  Age: 43 Year
  Sex: Male

DRUGS (11)
  1. DOXORUBICIN HYDROCHLORIDE [Suspect]
     Active Substance: DOXORUBICIN HYDROCHLORIDE
     Indication: Adult T-cell lymphoma/leukaemia
     Dosage: EPOCH
  2. CYCLOPHOSPHAMIDE [Suspect]
     Active Substance: CYCLOPHOSPHAMIDE
     Indication: Adult T-cell lymphoma/leukaemia
     Dosage: EPOCH
  3. PREDNISONE [Suspect]
     Active Substance: PREDNISONE
     Indication: Adult T-cell lymphoma/leukaemia
     Dosage: EPOCH
  4. VINCRISTINE [Suspect]
     Active Substance: VINCRISTINE
     Indication: Adult T-cell lymphoma/leukaemia
     Dosage: EPOCH
  5. ARSENIC TRIOXIDE [Suspect]
     Active Substance: ARSENIC TRIOXIDE
     Indication: Adult T-cell lymphoma/leukaemia
  6. ETOPOSIDE [Suspect]
     Active Substance: ETOPOSIDE
     Indication: Adult T-cell lymphoma/leukaemia
     Dosage: EPOCH
  7. RALTEGRAVIR [Suspect]
     Active Substance: RALTEGRAVIR
     Indication: Adult T-cell lymphoma/leukaemia
  8. elraglusib [9-ING-41] [Concomitant]
     Indication: Adult T-cell lymphoma/leukaemia
     Dosage: IV ELRAGLUSIB [9-ING-41] 12.37 MG/KG TWICE WEEKLY, IN A 21-DAY CYCLE
     Route: 042
  9. ZIDOVUDINE [Concomitant]
     Active Substance: ZIDOVUDINE
     Indication: Adult T-cell lymphoma/leukaemia
  10. LAMIVUDINE [Concomitant]
     Active Substance: LAMIVUDINE
     Indication: Adult T-cell lymphoma/leukaemia
  11. RALTEGRAVIR [Concomitant]
     Active Substance: RALTEGRAVIR
     Indication: Adult T-cell lymphoma/leukaemia

REACTIONS (3)
  - Adult T-cell lymphoma/leukaemia [Fatal]
  - Disease progression [Fatal]
  - Drug ineffective for unapproved indication [Unknown]
